FAERS Safety Report 10560855 (Version 1)
Quarter: 2014Q4

REPORT INFORMATION
  Report Type: Spontaneous
  Country: US (occurrence: US)
  Receive Date: 20141103
  Receipt Date: 20141103
  Transmission Date: 20150529
  Serious: Yes (Hospitalization)
  Sender: FDA-Public Use
  Company Number: US-JNJFOC-20141020140

PATIENT
  Age: 84 Year
  Sex: Male
  Weight: 89 kg

DRUGS (19)
  1. IMBRUVICA [Suspect]
     Active Substance: IBRUTINIB
     Indication: CHRONIC LYMPHOCYTIC LEUKAEMIA
     Route: 048
     Dates: start: 20140529, end: 201409
  2. LOSARTAN [Concomitant]
     Active Substance: LOSARTAN
  3. FERROUS SULFATE [Concomitant]
     Active Substance: FERROUS SULFATE\FERROUS SULFATE, DRIED
  4. PHENERGAN [Concomitant]
     Active Substance: PROMETHAZINE HYDROCHLORIDE
  5. VALSARTAN. [Concomitant]
     Active Substance: VALSARTAN
  6. PRADAXA [Concomitant]
     Active Substance: DABIGATRAN ETEXILATE MESYLATE
  7. METOPROLOL [Concomitant]
     Active Substance: METOPROLOL
  8. SULAR [Concomitant]
     Active Substance: NISOLDIPINE
     Dates: end: 201410
  9. TERAZOSIN [Concomitant]
     Active Substance: TERAZOSIN\TERAZOSIN HYDROCHLORIDE
     Dates: end: 201410
  10. SIMVASTATIN. [Concomitant]
     Active Substance: SIMVASTATIN
  11. FLOMAX [Concomitant]
     Active Substance: TAMSULOSIN HYDROCHLORIDE
  12. VICTOZA [Concomitant]
     Active Substance: LIRAGLUTIDE
     Route: 058
  13. SYNTHROID [Concomitant]
     Active Substance: LEVOTHYROXINE SODIUM
  14. INSULIN LISPRO [Concomitant]
     Active Substance: INSULIN LISPRO
  15. PRILOSEC [Concomitant]
     Active Substance: OMEPRAZOLE MAGNESIUM
  16. LANTUS [Concomitant]
     Active Substance: INSULIN GLARGINE
  17. PROVENTIL [Concomitant]
     Active Substance: ALBUTEROL
  18. VALSARTAN. [Concomitant]
     Active Substance: VALSARTAN
  19. PROSCAR [Concomitant]
     Active Substance: FINASTERIDE

REACTIONS (6)
  - Sinusitis [Recovered/Resolved]
  - Stomatitis [Recovered/Resolved]
  - Cardiac failure congestive [Recovered/Resolved]
  - Oropharyngeal pain [Recovered/Resolved]
  - Ear infection [Recovered/Resolved]
  - Atrial fibrillation [Recovered/Resolved]

NARRATIVE: CASE EVENT DATE: 201409
